FAERS Safety Report 8531297-4 (Version None)
Quarter: 2012Q3

REPORT INFORMATION
  Report Type: 
  Country: None (occurrence: None)
  Receive Date: 20120711
  Receipt Date: 20120509
  Transmission Date: 20120928
  Serious: Yes (Life-Threatening, Hospitalization, Other)
  Sender: FDA-Public Use
  Company Number: MC201200192

PATIENT
  Age: 69 Year
  Sex: Male
  Weight: 63 kg

DRUGS (7)
  1. ASA (ASA) [Concomitant]
  2. HYPOGLYCEMIC ORAL DRUG [Concomitant]
  3. ANGIOMAX [Suspect]
     Indication: PERCUTANEOUS CORONARY INTERVENTION
     Dosage: 0.75 MG/KG, BOLUS, INTRAVENOUS 1.75 MG/KG, HR 0.25 MG/KG, HR FOR 75 MINUTES, INTRAVENOUS
     Route: 042
     Dates: start: 20120327, end: 20120327
  4. ANGIOMAX [Suspect]
     Indication: PERCUTANEOUS CORONARY INTERVENTION
     Dosage: 0.75 MG/KG, BOLUS, INTRAVENOUS 1.75 MG/KG, HR 0.25 MG/KG, HR FOR 75 MINUTES, INTRAVENOUS
     Route: 042
     Dates: start: 20120327, end: 20120327
  5. ANGIOMAX [Suspect]
     Indication: PERCUTANEOUS CORONARY INTERVENTION
     Dosage: 0.75 MG/KG, BOLUS, INTRAVENOUS 1.75 MG/KG, HR 0.25 MG/KG, HR FOR 75 MINUTES, INTRAVENOUS
     Route: 042
     Dates: start: 20120327, end: 20120327
  6. ATORVASTATIN CALCIUM [Concomitant]
  7. PRASUGREL (PRASUGREL) [Concomitant]

REACTIONS (6)
  - MYOCARDIAL INFARCTION [None]
  - ANGINA PECTORIS [None]
  - ELECTROCARDIOGRAM ST SEGMENT ELEVATION [None]
  - THROMBOSIS IN DEVICE [None]
  - DRUG INEFFECTIVE [None]
  - PRODUCT QUALITY ISSUE [None]
